FAERS Safety Report 9266425 (Version 2)
Quarter: 2015Q1

REPORT INFORMATION
  Report Type: Report from Study
  Country: DE (occurrence: DE)
  Receive Date: 20130502
  Receipt Date: 20150126
  Transmission Date: 20150721
  Serious: Yes (Other)
  Sender: FDA-Public Use
  Company Number: DE-ROCHE-1218956

PATIENT
  Age: 62 Year
  Sex: Female
  Weight: 58.2 kg

DRUGS (46)
  1. IRINOTECAN [Suspect]
     Active Substance: IRINOTECAN
     Indication: BRAIN NEOPLASM MALIGNANT
     Dosage: LAST DOSE PRIOR TO SAE: 11/APR/2013
     Route: 042
     Dates: start: 20120625, end: 20130425
  2. DEXAMETHASONE. [Concomitant]
     Active Substance: DEXAMETHASONE
     Route: 065
     Dates: start: 20120314, end: 20120314
  3. DEXAMETHASONE. [Concomitant]
     Active Substance: DEXAMETHASONE
     Route: 065
     Dates: start: 20120709, end: 20120711
  4. EMEND [Concomitant]
     Active Substance: APREPITANT
     Route: 065
     Dates: start: 20120904, end: 20120905
  5. DEXAMETHASONE. [Concomitant]
     Active Substance: DEXAMETHASONE
     Route: 065
     Dates: start: 20120914, end: 20120916
  6. IBUPROFEN. [Concomitant]
     Active Substance: IBUPROFEN
     Route: 065
     Dates: start: 20120517, end: 20120517
  7. EMEND [Concomitant]
     Active Substance: APREPITANT
     Route: 065
     Dates: start: 20120710, end: 20120711
  8. EMEND [Concomitant]
     Active Substance: APREPITANT
     Route: 065
     Dates: start: 20120821, end: 20120822
  9. ONDANSETRON [Concomitant]
     Active Substance: ONDANSETRON
     Route: 065
     Dates: start: 20120725, end: 20120727
  10. DEXAMETHASONE. [Concomitant]
     Active Substance: DEXAMETHASONE
     Route: 065
     Dates: start: 20120329, end: 20120331
  11. DEXAMETHASONE. [Concomitant]
     Active Substance: DEXAMETHASONE
     Route: 065
     Dates: start: 20120401, end: 20120402
  12. EMEND [Concomitant]
     Active Substance: APREPITANT
     Route: 065
     Dates: start: 20121012, end: 20121013
  13. ONDANSETRON [Concomitant]
     Active Substance: ONDANSETRON
     Route: 065
     Dates: start: 20120625, end: 20120625
  14. DEXAMETHASONE. [Concomitant]
     Active Substance: DEXAMETHASONE
     Route: 065
     Dates: start: 20120806, end: 20120808
  15. IBUPROFEN. [Concomitant]
     Active Substance: IBUPROFEN
     Route: 065
     Dates: start: 20120612, end: 20120612
  16. EMEND [Concomitant]
     Active Substance: APREPITANT
     Route: 065
     Dates: start: 20120626, end: 20120627
  17. EMEND [Concomitant]
     Active Substance: APREPITANT
     Route: 065
     Dates: start: 20120725, end: 20120725
  18. EMEND [Concomitant]
     Active Substance: APREPITANT
     Route: 065
     Dates: start: 20120903, end: 20120903
  19. EMEND [Concomitant]
     Active Substance: APREPITANT
     Route: 065
     Dates: start: 20121011, end: 20121011
  20. ONDANSETRON [Concomitant]
     Active Substance: ONDANSETRON
     Route: 065
     Dates: start: 20120914, end: 20120916
  21. ONDANSETRON [Concomitant]
     Active Substance: ONDANSETRON
     Route: 065
     Dates: start: 20121011, end: 20121013
  22. DEXAMETHASONE. [Concomitant]
     Active Substance: DEXAMETHASONE
     Route: 065
     Dates: start: 20120315, end: 20120316
  23. ISOCILLIN [Concomitant]
     Route: 065
     Dates: start: 20120716, end: 20120728
  24. DEXAMETHASONE. [Concomitant]
     Active Substance: DEXAMETHASONE
     Route: 065
     Dates: start: 20120625, end: 20120627
  25. DEXAMETHASONE. [Concomitant]
     Active Substance: DEXAMETHASONE
     Route: 065
     Dates: start: 20120725, end: 20120727
  26. DEXAMETHASONE. [Concomitant]
     Active Substance: DEXAMETHASONE
     Route: 065
     Dates: start: 20121011, end: 20121013
  27. LORAZEPAM. [Concomitant]
     Active Substance: LORAZEPAM
     Route: 065
     Dates: start: 20120430, end: 20120612
  28. EMEND [Concomitant]
     Active Substance: APREPITANT
     Route: 065
     Dates: start: 20120726, end: 20120727
  29. EMEND [Concomitant]
     Active Substance: APREPITANT
     Route: 065
     Dates: start: 20120806, end: 20120806
  30. EMEND [Concomitant]
     Active Substance: APREPITANT
     Route: 065
     Dates: start: 20120914, end: 20120914
  31. ONDANSETRON [Concomitant]
     Active Substance: ONDANSETRON
     Route: 065
     Dates: start: 20120820, end: 20120822
  32. BEVACIZUMAB [Suspect]
     Active Substance: BEVACIZUMAB
     Indication: BRAIN NEOPLASM MALIGNANT
     Dosage: LAST DOSE PRIOR TO EVENT:11/APR/2013
     Route: 042
     Dates: start: 20120514, end: 20130425
  33. DEXAMETHASONE. [Concomitant]
     Active Substance: DEXAMETHASONE
     Route: 065
     Dates: start: 20120328, end: 20120328
  34. DEXAMETHASONE. [Concomitant]
     Active Substance: DEXAMETHASONE
     Route: 065
     Dates: start: 20120903, end: 20120905
  35. DEXAMETHASONE. [Concomitant]
     Active Substance: DEXAMETHASONE
     Route: 065
     Dates: start: 20120927, end: 20120929
  36. EMEND [Concomitant]
     Active Substance: APREPITANT
     Route: 065
     Dates: start: 20120709, end: 20120709
  37. EMEND [Concomitant]
     Active Substance: APREPITANT
     Route: 065
     Dates: start: 20120807, end: 20120808
  38. EMEND [Concomitant]
     Active Substance: APREPITANT
     Route: 065
     Dates: start: 20120820, end: 20120820
  39. EMEND [Concomitant]
     Active Substance: APREPITANT
     Route: 065
     Dates: start: 20120915, end: 20120916
  40. EMEND [Concomitant]
     Active Substance: APREPITANT
     Route: 065
     Dates: start: 20120927, end: 20120927
  41. EMEND [Concomitant]
     Active Substance: APREPITANT
     Route: 065
     Dates: start: 20120928, end: 20120929
  42. ONDANSETRON [Concomitant]
     Active Substance: ONDANSETRON
     Route: 065
     Dates: start: 20120709, end: 20120711
  43. ONDANSETRON [Concomitant]
     Active Substance: ONDANSETRON
     Route: 065
     Dates: start: 20120808, end: 20120808
  44. DEXAMETHASONE. [Concomitant]
     Active Substance: DEXAMETHASONE
     Route: 065
     Dates: start: 20120317, end: 20120327
  45. DEXAMETHASONE. [Concomitant]
     Active Substance: DEXAMETHASONE
     Route: 065
     Dates: start: 20120820, end: 20120822
  46. EMEND [Concomitant]
     Active Substance: APREPITANT
     Route: 065
     Dates: start: 20120625, end: 20120625

REACTIONS (1)
  - Osteonecrosis [Not Recovered/Not Resolved]

NARRATIVE: CASE EVENT DATE: 20121217
